FAERS Safety Report 21381684 (Version 5)
Quarter: 2022Q4

REPORT INFORMATION
  Report Type: Report from Study
  Country: US (occurrence: US)
  Receive Date: 20220927
  Receipt Date: 20221227
  Transmission Date: 20230113
  Serious: Yes (Hospitalization)
  Sender: FDA-Public Use
  Company Number: US-GBT-016556

PATIENT
  Age: 23 Year
  Sex: Male

DRUGS (25)
  1. OXBRYTA [Suspect]
     Active Substance: VOXELOTOR
     Indication: Sickle cell disease
     Dates: start: 20220408, end: 2022
  2. ZOLOFT [Concomitant]
     Active Substance: SERTRALINE HYDROCHLORIDE
     Indication: Anxiety
     Route: 048
     Dates: start: 20200909
  3. hydroxyurea (hydrea) [Concomitant]
     Indication: Sickle cell disease
     Dosage: ALTERNATE 1500/2000 MG
     Route: 048
     Dates: start: 20170719
  4. odansetron (zofran) [Concomitant]
     Indication: Nausea
     Route: 048
     Dates: start: 20220411
  5. cetirizine (zyrtec) 10 mg tablet [Concomitant]
     Indication: Product used for unknown indication
     Route: 048
     Dates: start: 2012
  6. lisinopril (prinivil) [Concomitant]
     Indication: Sickle cell disease
     Route: 048
     Dates: start: 20220401
  7. diphenhydramine (benadryl) [Concomitant]
     Indication: Pruritus
     Dosage: TIME INTERVAL: AS NECESSARY
     Route: 048
     Dates: start: 20220113
  8. folic acid (folvite) 1 mg tablet [Concomitant]
     Indication: Sickle cell disease
     Route: 048
     Dates: start: 20121214
  9. cyclobenaprine (Flexeril) [Concomitant]
     Indication: Sickle cell disease
     Dosage: TIME INTERVAL: 0.33333333 DAYS
     Route: 048
     Dates: start: 20220613, end: 20220713
  10. morphine (MS CONTIN) 30 mg 12?extended release tablet [Concomitant]
     Indication: Sickle cell disease
     Route: 048
     Dates: start: 20220408, end: 20220531
  11. morphine (MS CONTIN) 30 mg 12?extended release tablet [Concomitant]
     Indication: Sickle cell disease
     Route: 048
     Dates: start: 20220531
  12. SEROQUEL [Concomitant]
     Active Substance: QUETIAPINE FUMARATE
     Indication: Product used for unknown indication
     Route: 048
     Dates: start: 20220331
  13. crizanlizumab-tmca (Adakveo) in NaCl 0.9% 100 mL infusion [Concomitant]
     Indication: Sickle cell disease
     Route: 042
     Dates: start: 20211217
  14. gabapentin (neurontin) 300 mg tablet [Concomitant]
     Indication: Sickle cell disease
     Route: 048
     Dates: start: 20220215, end: 20220613
  15. gabapentin (neurontin) 300 mg tablet [Concomitant]
     Indication: Sickle cell disease
     Route: 048
     Dates: start: 20220809
  16. triamcinolone acetonide (kenalog) [Concomitant]
     Indication: Dermatitis atopic
     Route: 061
     Dates: start: 20200917
  17. senna-docusate (pericolace) 8.6-50 mg?tablet [Concomitant]
     Indication: Constipation
     Dosage: DOSAGE: 1 U
     Route: 048
     Dates: start: 20210423
  18. ergocalciferol (drisdol) 1,250 mcg (50,000?unit) capsule [Concomitant]
     Indication: Product used for unknown indication
     Route: 048
     Dates: start: 20150917, end: 20220728
  19. clindamycin-benzoyl peroxide (Benzaclin) [Concomitant]
     Indication: Acne
     Dosage: TIME INTERVAL: AS NECESSARY
     Route: 061
     Dates: start: 20150425
  20. oxycodone IR (roxicodone) 15 mg immediate release tablet [Concomitant]
     Indication: Sickle cell disease
     Route: 048
     Dates: start: 20200923
  21. ibuprofen (motrin) 600 mg tablet [Concomitant]
     Indication: Sickle cell disease
     Route: 048
     Dates: start: 20200402
  22. amoxicillin (Amoxil) [Concomitant]
     Indication: Prophylaxis
     Route: 048
     Dates: start: 20190322
  23. naloxone (narcan) 4 mg/actuation nasal?spray [Concomitant]
     Indication: Product used for unknown indication
     Dosage: TIME INTERVAL: AS NECESSARY: DOSAGE: 1 U
     Route: 045
     Dates: start: 20210812
  24. ibuprofen (motrin) 600 mg tablet [Concomitant]
     Indication: Sickle cell disease
     Dosage: AS NECESSARY (PRN)
     Route: 048
     Dates: start: 20200402
  25. gabapentin (neurontin) 300 mg tablet [Concomitant]
     Indication: Sickle cell disease
     Route: 048
     Dates: start: 20220215, end: 20220613

REACTIONS (1)
  - Sickle cell anaemia with crisis [Recovered/Resolved]

NARRATIVE: CASE EVENT DATE: 20220608
